FAERS Safety Report 18443082 (Version 1)
Quarter: 2020Q4

REPORT INFORMATION
  Report Type: Report from Study
  Country: FR (occurrence: FR)
  Receive Date: 20201029
  Receipt Date: 20201029
  Transmission Date: 20210114
  Serious: Yes (Hospitalization)
  Sender: FDA-Public Use
  Company Number: FR-CELGENEUS-FRA-20201003256

PATIENT
  Age: 61 Year
  Sex: Female
  Weight: 70 kg

DRUGS (15)
  1. DEXAMETHASONE. [Suspect]
     Active Substance: DEXAMETHASONE
     Indication: PLASMA CELL MYELOMA RECURRENT
  2. DEXAMETHASONE. [Suspect]
     Active Substance: DEXAMETHASONE
     Indication: PLASMA CELL MYELOMA
     Dosage: CUMULATIVE DOSE 4800 MG
     Route: 048
     Dates: start: 20150205, end: 20190219
  3. BACTRIM [Concomitant]
     Active Substance: SULFAMETHOXAZOLE\TRIMETHOPRIM
     Indication: PRODUCT USED FOR UNKNOWN INDICATION
     Route: 065
     Dates: start: 20150204, end: 202007
  4. LEDERFOLINE [Concomitant]
     Active Substance: LEUCOVORIN CALCIUM
     Indication: PRODUCT USED FOR UNKNOWN INDICATION
     Route: 065
     Dates: start: 20150204
  5. ORACILLINE [Concomitant]
     Active Substance: PENICILLIN V
     Indication: PRODUCT USED FOR UNKNOWN INDICATION
     Dosage: 2000 IU (INTERNATIONAL UNIT)
     Route: 065
     Dates: start: 20150204
  6. INEXIUM [Concomitant]
     Active Substance: ESOMEPRAZOLE
     Indication: ABDOMINAL PAIN UPPER
     Dosage: 20 MILLIGRAMS
     Route: 065
     Dates: start: 20150204
  7. AUGMENTIN [Concomitant]
     Active Substance: AMOXICILLIN\CLAVULANATE POTASSIUM
     Indication: PYREXIA
  8. POMALIDOMIDE [Suspect]
     Active Substance: POMALIDOMIDE
     Indication: PLASMA CELL MYELOMA
     Dosage: CUMULATIVE DOSE 4494 MG
     Route: 048
     Dates: start: 20150205, end: 20201001
  9. POMALIDOMIDE [Suspect]
     Active Substance: POMALIDOMIDE
     Indication: PLASMA CELL MYELOMA RECURRENT
  10. CYCLOPHOSPHAMIDE. [Suspect]
     Active Substance: CYCLOPHOSPHAMIDE
     Indication: PLASMA CELL MYELOMA
     Dosage: CUMULATIVE DOSE 7200 MG
     Route: 048
     Dates: start: 20150205, end: 20151117
  11. ZELITREX [Concomitant]
     Active Substance: VALACYCLOVIR HYDROCHLORIDE
     Indication: PRODUCT USED FOR UNKNOWN INDICATION
     Dosage: 1000 MILLIGRAMS
     Route: 065
     Dates: start: 20150204
  12. ENDOXAN [Concomitant]
     Active Substance: CYCLOPHOSPHAMIDE
     Indication: PLASMA CELL MYELOMA RECURRENT
     Route: 065
  13. MELPHALAN. [Concomitant]
     Active Substance: MELPHALAN
     Indication: PLASMA CELL MYELOMA RECURRENT
     Route: 065
     Dates: start: 20150626
  14. KARDEGIC [Concomitant]
     Active Substance: ASPIRIN DL-LYSINE
     Indication: PRODUCT USED FOR UNKNOWN INDICATION
     Dosage: 75 MILLIGRAMS
     Route: 065
     Dates: start: 20150204
  15. AUGMENTIN [Concomitant]
     Active Substance: AMOXICILLIN\CLAVULANATE POTASSIUM
     Indication: COUGH
     Route: 065
     Dates: start: 20200921, end: 20200928

REACTIONS (1)
  - Bronchial disorder [Recovered/Resolved with Sequelae]

NARRATIVE: CASE EVENT DATE: 20200911
